FAERS Safety Report 8837935 (Version 2)
Quarter: 2015Q1

REPORT INFORMATION
  Report Type: Report from Study
  Country: US (occurrence: US)
  Receive Date: 20121012
  Receipt Date: 20150127
  Transmission Date: 20150721
  Serious: Yes (Other)
  Sender: FDA-Public Use
  Company Number: US-ROCHE-1128848

PATIENT
  Sex: Male
  Weight: 26.4 kg

DRUGS (5)
  1. LUPRON [Concomitant]
     Active Substance: LEUPROLIDE ACETATE
     Route: 065
     Dates: start: 20000609
  2. NUTROPIN [Suspect]
     Active Substance: SOMATROPIN
     Route: 058
  3. RISPERDAL [Suspect]
     Active Substance: RISPERIDONE
     Indication: PRODUCT USED FOR UNKNOWN INDICATION
     Route: 065
  4. NUTROPIN [Suspect]
     Active Substance: SOMATROPIN
     Dosage: LAST INJECTION WAS ON 29/JUL/2001
     Route: 058
  5. NUTROPIN [Suspect]
     Active Substance: SOMATROPIN
     Indication: DWARFISM
     Route: 058

REACTIONS (3)
  - Seizure [Unknown]
  - Pectus excavatum [Unknown]
  - Hair growth abnormal [Unknown]
